FAERS Safety Report 9322335 (Version 2)
Quarter: 2013Q3

REPORT INFORMATION
  Report Type: Spontaneous
  Country: JP (occurrence: JP)
  Receive Date: 20130531
  Receipt Date: 20130813
  Transmission Date: 20140515
  Serious: Yes (Other)
  Sender: FDA-Public Use
  Company Number: JP-AMGEN-JPNSP2013038517

PATIENT
  Age: 62 Year
  Sex: Female

DRUGS (4)
  1. ENBREL [Suspect]
     Indication: RHEUMATOID ARTHRITIS
     Dosage: 25 MG, WEEKLY
     Route: 058
     Dates: start: 20100507, end: 20130402
  2. RHEUMATREX /00113802/ [Suspect]
     Indication: RHEUMATOID ARTHRITIS
     Dosage: 6 MG, WEEKLY
     Route: 048
     Dates: start: 20100210, end: 20100803
  3. RHEUMATREX /00113802/ [Suspect]
     Dosage: 4 MG, WEEKLY
     Route: 048
     Dates: start: 20100806, end: 20110524
  4. METOLATE [Suspect]
     Indication: RHEUMATOID ARTHRITIS
     Dosage: 2 MG, WEEKLY
     Route: 048
     Dates: start: 20120124

REACTIONS (1)
  - Gastric cancer [Recovering/Resolving]
